FAERS Safety Report 5527003-8 (Version None)
Quarter: 2007Q4

REPORT INFORMATION
  Report Type: 
  Country: None (occurrence: None)
  Receive Date: 20071127
  Receipt Date: 20071113
  Transmission Date: 20080405
  Serious: Yes (Hospitalization)
  Sender: FDA-Public Use
  Company Number: ES-RANBAXY-2007RR-11443

PATIENT

DRUGS (2)
  1. TOPIRAMATE [Suspect]
  2. RISPERIDONE [Concomitant]

REACTIONS (13)
  - ALANINE AMINOTRANSFERASE INCREASED [None]
  - ASPARTATE AMINOTRANSFERASE INCREASED [None]
  - BLOOD CREATINE PHOSPHOKINASE INCREASED [None]
  - BLOOD CREATININE INCREASED [None]
  - DEPRESSED LEVEL OF CONSCIOUSNESS [None]
  - GLASGOW COMA SCALE ABNORMAL [None]
  - HEART RATE INCREASED [None]
  - HEAT STROKE [None]
  - MEAN ARTERIAL PRESSURE DECREASED [None]
  - OXYGEN SATURATION DECREASED [None]
  - PROTHROMBIN LEVEL INCREASED [None]
  - PYREXIA [None]
  - WHITE BLOOD CELL COUNT INCREASED [None]
